FAERS Safety Report 4664181-7 (Version None)
Quarter: 2005Q2

REPORT INFORMATION
  Report Type: 
  Country: None (occurrence: None)
  Receive Date: 20050516
  Receipt Date: 20050509
  Transmission Date: 20051028
  Serious: Yes (Death, Hospitalization)
  Sender: FDA-Public Use
  Company Number: 045-0981-M0000039

PATIENT
  Age: 55 Year
  Sex: Male
  Weight: 77 kg

DRUGS (5)
  1. ATORVASTATIN CALCIUM [Suspect]
     Indication: ACUTE MYOCARDIAL INFARCTION
     Dosage: 80 MG 1 IN 1 D, ORAL
     Route: 048
     Dates: start: 20000324, end: 20000522
  2. AMLODIPINE [Concomitant]
  3. POTASSIUM CHLORIDE [Concomitant]
  4. ALBYL-ENTEROSOLUBILE (ACETYLSALICYLIC ACID, MAGNESIUM OXIDE) [Concomitant]
  5. FUROSEMIDE [Concomitant]

REACTIONS (7)
  - CARDIAC FAILURE [None]
  - CORONARY ARTERY ATHEROSCLEROSIS [None]
  - CORONARY ARTERY REOCCLUSION [None]
  - HEPATITIS [None]
  - MYOCARDIAL ISCHAEMIA [None]
  - RENAL FAILURE [None]
  - WHITE BLOOD CELL COUNT INCREASED [None]
